FAERS Safety Report 18529682 (Version 1)
Quarter: 2020Q4

REPORT INFORMATION
  Report Type: Spontaneous
  Country: US (occurrence: US)
  Receive Date: 20201120
  Receipt Date: 20201120
  Transmission Date: 20210114
  Serious: No
  Sender: FDA-Public Use
  Company Number: US-NOVOPROD-728185

PATIENT
  Age: 36 Year
  Sex: Male

DRUGS (3)
  1. NOVOLOG [Suspect]
     Active Substance: INSULIN ASPART
     Indication: TYPE 1 DIABETES MELLITUS
     Dosage: UNK
     Route: 058
  2. NOVOLOG [Suspect]
     Active Substance: INSULIN ASPART
     Dosage: ADDITIONAL 18-20 UNITS
     Route: 058
     Dates: start: 20200528
  3. NOVOLOG [Suspect]
     Active Substance: INSULIN ASPART
     Dosage: TOOK MORE INSULIN
     Route: 058

REACTIONS (6)
  - Hyperglycaemia [Recovered/Resolved]
  - Urticaria [Unknown]
  - Product physical issue [Unknown]
  - Dehydration [Recovered/Resolved]
  - Product quality issue [Recovered/Resolved]
  - Drug ineffective [Recovered/Resolved]

NARRATIVE: CASE EVENT DATE: 202004
